FAERS Safety Report 16906076 (Version 1)
Quarter: 2019Q4

REPORT INFORMATION
  Report Type: Spontaneous
  Country: CA (occurrence: CA)
  Receive Date: 20191010
  Receipt Date: 20191010
  Transmission Date: 20200122
  Serious: Yes (Other)
  Sender: FDA-Public Use
  Company Number: CA-AUROBINDO-AUR-APL-2019-034286

PATIENT
  Age: 54 Year
  Sex: Male

DRUGS (4)
  1. ROSUVASTATIN. [Suspect]
     Active Substance: ROSUVASTATIN
     Indication: HYPERTRIGLYCERIDAEMIA
     Dosage: UNK
     Route: 065
  2. EFAVIRENZ. [Suspect]
     Active Substance: EFAVIRENZ
     Indication: HIV INFECTION
     Dosage: UNK
     Route: 065
  3. ABACAVIR/LAMIVUDINE [Suspect]
     Active Substance: ABACAVIR\LAMIVUDINE
     Indication: HIV INFECTION
     Dosage: UNK
     Route: 065
  4. FENOFIBRATE MYLAN [Suspect]
     Active Substance: FENOFIBRATE
     Indication: HYPERTRIGLYCERIDAEMIA
     Dosage: UNK
     Route: 065

REACTIONS (2)
  - Drug ineffective [Not Recovered/Not Resolved]
  - Hypertriglyceridaemia [Not Recovered/Not Resolved]
